FAERS Safety Report 6221119-9 (Version None)
Quarter: 2009Q2

REPORT INFORMATION
  Report Type: 
  Country: None (occurrence: None)
  Receive Date: 20090610
  Receipt Date: 20090602
  Transmission Date: 20091009
  Serious: Yes (Other)
  Sender: FDA-Public Use
  Company Number: B0577990A

PATIENT
  Age: 24 Year
  Sex: Male

DRUGS (1)
  1. SERETIDE [Suspect]
     Indication: ASTHMA
     Dosage: 1PUFF PER DAY
     Route: 055
     Dates: start: 20090521, end: 20090521

REACTIONS (3)
  - DYSPNOEA [None]
  - FOREIGN BODY TRAUMA [None]
  - PRODUCT QUALITY ISSUE [None]
